FAERS Safety Report 6096430-5 (Version None)
Quarter: 2009Q1

REPORT INFORMATION
  Report Type: 
  Country: None (occurrence: None)
  Receive Date: 20090227
  Receipt Date: 20090113
  Transmission Date: 20090719
  Serious: No
  Sender: FDA-Public Use
  Company Number: A0760733A

PATIENT
  Age: 52 Year
  Sex: Female

DRUGS (3)
  1. LAMICTAL [Suspect]
     Indication: BIPOLAR DISORDER
     Dosage: 200MG PER DAY
     Route: 048
     Dates: start: 20010101, end: 20080701
  2. LITHIUM [Concomitant]
  3. VALIUM [Concomitant]

REACTIONS (7)
  - DIZZINESS [None]
  - FATIGUE [None]
  - INSOMNIA [None]
  - IRRITABILITY [None]
  - MYALGIA [None]
  - PAIN [None]
  - WITHDRAWAL SYNDROME [None]
